FAERS Safety Report 4629616-4 (Version None)
Quarter: 2005Q1

REPORT INFORMATION
  Report Type: 
  Country: None (occurrence: None)
  Receive Date: 20050331
  Receipt Date: 20050318
  Transmission Date: 20050727
  Serious: Yes (Hospitalization, Disabling)
  Sender: FDA-Public Use
  Company Number: HQWYE299723MAR05

PATIENT
  Age: 73 Year
  Sex: Male
  Weight: 94 kg

DRUGS (3)
  1. BENEFIX [Suspect]
     Indication: HAEMORRHAGE
     Dosage: SEE  IMAGE
     Route: 042
     Dates: start: 20040210, end: 20040210
  2. BENEFIX [Suspect]
     Indication: HAEMORRHAGE
     Dosage: SEE  IMAGE
     Route: 042
     Dates: start: 20040219, end: 20040219
  3. BENEFIX [Suspect]
     Indication: HAEMORRHAGE
     Dosage: SEE  IMAGE
     Route: 042
     Dates: start: 20040220, end: 20040222

REACTIONS (9)
  - ACTIVITIES OF DAILY LIVING IMPAIRED [None]
  - DRUG INEFFECTIVE [None]
  - HAEMATOCRIT DECREASED [None]
  - IMMOBILE [None]
  - INTERNATIONAL NORMALISED RATIO INCREASED [None]
  - MUSCLE HAEMORRHAGE [None]
  - PAIN [None]
  - REFUSAL OF TREATMENT BY PATIENT [None]
  - RETROPERITONEAL HAEMATOMA [None]
